FAERS Safety Report 9482075 (Version 1)
Quarter: 2013Q3

REPORT INFORMATION
  Report Type: Report from Study
  Country: GB (occurrence: GB)
  Receive Date: 20130828
  Receipt Date: 20130828
  Transmission Date: 20140515
  Serious: Yes (Other)
  Sender: FDA-Public Use
  Company Number: GB-ROCHE-1264434

PATIENT
  Sex: Female

DRUGS (3)
  1. BEVACIZUMAB [Suspect]
     Indication: BREAST CANCER METASTATIC
     Dosage: ON DAY 1 FOR UP TO EIGHT 3 WEEKLY CYCLES
     Route: 065
  2. CARBOPLATIN [Suspect]
     Indication: BREAST CANCER METASTATIC
     Dosage: AUC 5 ON DAY 1 FOR UP TO EIGHT 3 WEEKLY CYCLES
     Route: 065
  3. GEMCITABINE [Suspect]
     Indication: BREAST CANCER METASTATIC
     Dosage: ON DAYS 1 AND 8 FOR UP TO EIGHT 3 WEEKLY CYCLES
     Route: 065

REACTIONS (15)
  - Fatigue [Unknown]
  - Diarrhoea [Unknown]
  - Pain [Unknown]
  - Dry skin [Unknown]
  - Vomiting [Unknown]
  - Anaphylactic reaction [Unknown]
  - Palmar-plantar erythrodysaesthesia syndrome [Unknown]
  - Cough [Unknown]
  - Insomnia [Unknown]
  - Mucosal inflammation [Unknown]
  - Hot flush [Unknown]
  - Neuralgia [Unknown]
  - Hypertension [Unknown]
  - Dysgeusia [Unknown]
  - Nausea [Unknown]
